FAERS Safety Report 21302661 (Version 1)
Quarter: 2022Q3

REPORT INFORMATION
  Report Type: Spontaneous
  Country: US (occurrence: None)
  Receive Date: 20220907
  Receipt Date: 20220907
  Transmission Date: 20221027
  Serious: No
  Sender: FDA-Public Use
  Company Number: None

PATIENT

DRUGS (1)
  1. FLUDEOXYGLUCOSE F-18 [Suspect]
     Active Substance: FLUDEOXYGLUCOSE F-18

REACTIONS (1)
  - Product preparation error [None]
